FAERS Safety Report 8370195-6 (Version None)
Quarter: 2012Q2

REPORT INFORMATION
  Report Type: 
  Country: None (occurrence: None)
  Receive Date: 20120518
  Receipt Date: 20120509
  Transmission Date: 20120825
  Serious: No
  Sender: FDA-Public Use
  Company Number: US-B.I. PHARMACEUTICALS,INC./RIDGEFIELD-2012-BP-03897BP

PATIENT
  Sex: Female
  Weight: 58.05 kg

DRUGS (10)
  1. SIMVASTATIN [Concomitant]
     Indication: BLOOD CHOLESTEROL INCREASED
     Route: 048
     Dates: start: 20100101
  2. DULERA [Concomitant]
     Indication: CHRONIC OBSTRUCTIVE PULMONARY DISEASE
     Route: 055
     Dates: start: 20120101
  3. ALBUTEROL [Concomitant]
     Indication: CHRONIC OBSTRUCTIVE PULMONARY DISEASE
     Route: 055
     Dates: start: 20070101
  4. ALENDRONATE SODIUM [Concomitant]
     Indication: OSTEOPOROSIS
     Route: 048
     Dates: start: 20080101
  5. VARIOUS HERBAL SUPPLEMENTS [Concomitant]
     Indication: SUPPLEMENTATION THERAPY
  6. VARIOUS VITAMINS [Concomitant]
     Indication: SUPPLEMENTATION THERAPY
  7. SPIRIVA [Suspect]
     Indication: CHRONIC OBSTRUCTIVE PULMONARY DISEASE
     Dosage: 18 MCG
     Route: 055
     Dates: start: 20120227, end: 20120227
  8. ACCOLATE [Concomitant]
     Indication: HYPERSENSITIVITY
     Dosage: 20 MG
     Route: 048
     Dates: start: 20100101
  9. SPIRIVA [Suspect]
     Indication: INHALATION THERAPY
  10. MULLEIN LIQUID [Concomitant]
     Indication: CHRONIC OBSTRUCTIVE PULMONARY DISEASE
     Route: 048
     Dates: start: 20120101

REACTIONS (1)
  - DYSPNOEA [None]
